FAERS Safety Report 4752905-X (Version None)
Quarter: 2005Q3

REPORT INFORMATION
  Report Type: 
  Country: None (occurrence: None)
  Receive Date: 20050714
  Receipt Date: 20050224
  Transmission Date: 20060218
  Serious: Yes (Hospitalization)
  Sender: FDA-Public Use
  Company Number: 200510232US

PATIENT
  Sex: Female
  Weight: 65.4 kg

DRUGS (2)
  1. TAXOTERE [Suspect]
     Indication: LUNG NEOPLASM MALIGNANT
     Dosage: CYC
     Dates: start: 20050110
  2. CISPLATIN [Concomitant]

REACTIONS (3)
  - CHEST PAIN [None]
  - EXTRAVASATION [None]
  - PULMONARY OEDEMA [None]
